FAERS Safety Report 8924175 (Version 4)
Quarter: 2013Q1

REPORT INFORMATION
  Report Type: Spontaneous
  Country: PL (occurrence: None)
  Receive Date: 20121116
  Receipt Date: 20121219
  Transmission Date: 20140127
  Serious: Yes (Hospitalization)
  Sender: FDA-Public Use
  Company Number: 2012-1267

PATIENT
  Age: 66 Year
  Sex: Male
  Weight: 98 kg

DRUGS (20)
  1. CARFILZOMIB [Suspect]
     Indication: PLASMA CELL MYELOMA
     Dosage: (56.7 MG,DAYS 8, 9, 15, 16)
     Route: 042
     Dates: start: 20120816, end: 20120817
  2. LENALIDOMIDE (LENALIDOMIDE) (CAPSULE) (LENALIDOMIDE) [Suspect]
     Indication: PLASMA CELL MYELOMA
     Dosage: (25 MG,  DAYS  1-21,  EVERY 28 DAYS)
     Route: 048
     Dates: start: 20110816, end: 20111213
  3. DEXAMETHASONE [Suspect]
     Indication: PLASMA CELL MYELOMA
     Dosage: (40 MG,  DAYS 1,  8,  15,  22,  EVERY  28  DAYS)
     Dates: start: 20110816, end: 20111115
  4. ACICLOVIRUM (ACICLOVIR) (ACICLOVIR) [Concomitant]
  5. ACIDUM ACETYLSALICYLICUM (ACETYLSALICYLIC ACID) (ACETYLSALICYLIC ACID) [Concomitant]
  6. ALFACALCIDOL (ALFACALCIDOL) (ALFACALCIDOL) [Concomitant]
  7. ALLOPURINOLUM (ALLOPURINOL) (ALLOPURINOL) [Concomitant]
  8. AMLODYPINUM (AMLODIPINE) (AMLODIPINE) [Concomitant]
  9. ATORVASTATINUM (ATORVASTATIN CALCIUM) (ATORVASTATIN CALCIUM) [Concomitant]
  10. AUGMENTIN (AMOXICILLIN SODIUM) (AMOXICILLIN SODIUM) [Concomitant]
  11. BIOTRAXON [Concomitant]
  12. CALCIUM LACTOGLUKONATE (CALCIUM GLUCONATE) (CALCIUM GLUCONATE) [Concomitant]
  13. CIPROPOL (CIPROFLOXACIN HYDROCHLORIDE) (CIPROFLOXACIN HYDROCHLORIDE) [Concomitant]
  14. FLUCONAZOL (FLUCONAZOLE) (FLUCONAZOLE) [Concomitant]
  15. KALII CHLORIDUM (POTASSIUM CHLORIDE) (POTASSIUM CHLORIDE) [Concomitant]
  16. LANSOPRASOLUM (LANSOPRAZOLE) (LANSOPRAZOLE) [Concomitant]
  17. METOPROLOL (METOPROLOL) (METOPROLOL) [Concomitant]
  18. PAMIFOS (PAMIDRONATE DISODIUM) (PAMIDRONATE DISODIUM) [Concomitant]
  19. RAMIPRIL (RAMIPRIL) (RAMIPRIL) [Concomitant]
  20. XORIMAX (CEFUROXIME AXETIL) (CEFUROXIME AXETIL) [Concomitant]

REACTIONS (2)
  - Pancreatitis acute [None]
  - Duodenal stenosis [None]
